FAERS Safety Report 24449598 (Version 2)
Quarter: 2024Q4

REPORT INFORMATION
  Report Type: Other
  Country: FR (occurrence: FR)
  Receive Date: 20241017
  Receipt Date: 20241108
  Transmission Date: 20250115
  Serious: Yes (Death)
  Sender: ZYDUS PHARM
  Company Number: None

PATIENT

DRUGS (7)
  1. RISPERIDONE [Suspect]
     Active Substance: RISPERIDONE
     Indication: Mental disorder
     Dosage: 1.5 MILLIGRAM, QD
     Route: 048
     Dates: start: 20240127, end: 20240319
  2. NEBIVOLOL [Suspect]
     Active Substance: NEBIVOLOL
     Indication: Hypertension
     Dosage: 2.5 MILLIGRAM, QD
     Route: 048
     Dates: start: 20231121, end: 20240319
  3. DALBAVANCIN HYDROCHLORIDE [Suspect]
     Active Substance: DALBAVANCIN HYDROCHLORIDE
     Indication: Device related infection
     Dosage: 1500 MILLIGRAM 1 TOTAL
     Route: 042
     Dates: start: 20240131, end: 20240131
  4. DALBAVANCIN HYDROCHLORIDE [Suspect]
     Active Substance: DALBAVANCIN HYDROCHLORIDE
     Dosage: 1500 MILLIGRAM 1 TOTAL
     Route: 042
     Dates: start: 20240306, end: 20240306
  5. AERIUS (DESLORATADINE) [Suspect]
     Active Substance: DESLORATADINE
     Indication: Product used for unknown indication
     Dosage: 5 MILLIGRAM, QD
     Route: 048
     Dates: start: 20231123, end: 20240319
  6. ESCITALOPRAM OXALATE [Suspect]
     Active Substance: ESCITALOPRAM OXALATE
     Indication: Mental disorder
     Dosage: 10 MILLIGRAM, QD
     Route: 048
     Dates: start: 20240127, end: 20240319
  7. RIFAMPIN [Suspect]
     Active Substance: RIFAMPIN
     Indication: Device related infection
     Dosage: 600 MILLIGRAM, QD
     Route: 048
     Dates: start: 20240127, end: 20240319

REACTIONS (1)
  - Sudden death [Fatal]

NARRATIVE: CASE EVENT DATE: 20240319
